FAERS Safety Report 7351832-1 (Version None)
Quarter: 2011Q1

REPORT INFORMATION
  Report Type: 
  Country: None (occurrence: None)
  Receive Date: 20110315
  Receipt Date: 20110218
  Transmission Date: 20110831
  Serious: Yes (Other)
  Sender: FDA-Public Use
  Company Number: US-BAYER-201032096NA

PATIENT
  Sex: Female
  Weight: 75 kg

DRUGS (25)
  1. YAZ [Suspect]
     Indication: ORAL CONTRACEPTION
     Route: 048
     Dates: end: 20070817
  2. YAZ [Suspect]
  3. DIURETICS [Concomitant]
     Indication: OEDEMA PERIPHERAL
  4. IMITREX [Concomitant]
  5. FUROSEMIDE [Concomitant]
  6. POTASSIUM [Concomitant]
     Dosage: UNK
     Dates: start: 20101001
  7. ZOCOR [Concomitant]
  8. OCELLA [Suspect]
     Indication: PRODUCT USED FOR UNKNOWN INDICATION
  9. BACLOFEN [Concomitant]
  10. VESICARE [Concomitant]
  11. ELEXIPRIL NOS (UNCODEABLE ^UNCLASSIFIABLE^) [Concomitant]
     Indication: ANXIETY
     Dates: start: 20050101
  12. MIRAPEX [Concomitant]
  13. ANTIBIOTICS [Concomitant]
  14. K-DUR [Concomitant]
  15. TRIAMTERENE [Concomitant]
     Indication: DIURETIC THERAPY
     Dates: start: 19970101
  16. LEVOXYL [Concomitant]
     Indication: HYPOTHYROIDISM
  17. UNCODEABLE ^UNCLASSIFIABLE^ [Concomitant]
     Indication: THROMBOSIS PROPHYLAXIS
  18. LISINOPRIL [Concomitant]
  19. UNCODEABLE ^UNCLASSIFIABLE^ [Concomitant]
  20. LEXAPRO [Concomitant]
  21. YAZ [Suspect]
     Indication: PREMENSTRUAL SYNDROME
  22. YASMIN [Suspect]
     Indication: PRODUCT USED FOR UNKNOWN INDICATION
  23. ZYRTEC [Concomitant]
  24. GABAPENTIN [Concomitant]
  25. ELEXIPRIL NOS (UNCODEABLE ^UNCLASSIFIABLE^) [Concomitant]
     Indication: DEPRESSION

REACTIONS (19)
  - ABDOMINAL DISTENSION [None]
  - NAUSEA [None]
  - THROMBOPHLEBITIS SUPERFICIAL [None]
  - OEDEMA PERIPHERAL [None]
  - ERYTHEMA [None]
  - UTERINE DISORDER [None]
  - BILIARY DYSKINESIA [None]
  - VOMITING [None]
  - CHEST PAIN [None]
  - BLADDER DISORDER [None]
  - PAIN IN EXTREMITY [None]
  - ABDOMINAL PAIN UPPER [None]
  - DEEP VEIN THROMBOSIS [None]
  - WEIGHT INCREASED [None]
  - UNEVALUABLE EVENT [None]
  - CHOLECYSTITIS CHRONIC [None]
  - ABDOMINAL PAIN [None]
  - DYSPHAGIA [None]
  - CONSTIPATION [None]
